FAERS Safety Report 9649393 (Version 2)
Quarter: 2013Q4

REPORT INFORMATION
  Report Type: Spontaneous
  Country: US (occurrence: US)
  Receive Date: 20131028
  Receipt Date: 20131028
  Transmission Date: 20140711
  Serious: Yes (Other)
  Sender: FDA-Public Use
  Company Number: US-ELI_LILLY_AND_COMPANY-US201308005685

PATIENT
  Sex: Female
  Weight: 105.22 kg

DRUGS (4)
  1. HUMALOG LISPRO [Suspect]
     Indication: PRODUCT USED FOR UNKNOWN INDICATION
     Dosage: UNK, UNKNOWN
     Route: 058
  2. HUMALOG LISPRO [Suspect]
     Dosage: UNK UNK, UNKNOWN
     Route: 058
  3. DIOVAN [Concomitant]
  4. B12                                /00056202/ [Concomitant]

REACTIONS (5)
  - Retinopathy proliferative [Not Recovered/Not Resolved]
  - Cystoid macular oedema [Not Recovered/Not Resolved]
  - Cataract cortical [Not Recovered/Not Resolved]
  - Vitreous floaters [Unknown]
  - Glycosylated haemoglobin increased [Unknown]
